FAERS Safety Report 11534255 (Version 1)
Quarter: 2015Q3

REPORT INFORMATION
  Report Type: Spontaneous
  Country: US (occurrence: None)
  Receive Date: 20150921
  Receipt Date: 20150921
  Transmission Date: 20151125
  Serious: Yes (Other)
  Sender: FDA-Public Use
  Company Number: None

PATIENT
  Age: 41 Year
  Sex: Female

DRUGS (1)
  1. HUMIRA [Suspect]
     Active Substance: ADALIMUMAB
     Indication: PSORIASIS
     Dosage: DOSE FORM: INJECTABLE
     Route: 058
     Dates: start: 20150911, end: 20150917

REACTIONS (1)
  - Chest pain [None]

NARRATIVE: CASE EVENT DATE: 20150917
